FAERS Safety Report 15760223 (Version 1)
Quarter: 2018Q4

REPORT INFORMATION
  Report Type: Spontaneous
  Country: IT (occurrence: IT)
  Receive Date: 20181226
  Receipt Date: 20181226
  Transmission Date: 20190205
  Serious: Yes (Hospitalization)
  Sender: FDA-Public Use
  Company Number: IT-PFIZER INC-2018523636

PATIENT
  Age: 80 Year
  Sex: Female

DRUGS (4)
  1. TIGECYCLINE. [Suspect]
     Active Substance: TIGECYCLINE
     Indication: KLEBSIELLA INFECTION
     Dosage: 200 MG, 1X/DAY
     Route: 042
     Dates: start: 20181006, end: 20181106
  2. LEVODOPA/BENSERAZIDE TEVA [Concomitant]
     Indication: DEMENTIA
     Dosage: 562.5 MG, UNK
     Route: 048
  3. RIVAROXABAN [Concomitant]
     Active Substance: RIVAROXABAN
     Indication: ATRIAL FIBRILLATION
     Dosage: 20 MG, UNK
     Route: 048
  4. GENTAMICIN SULFATE. [Suspect]
     Active Substance: GENTAMICIN SULFATE
     Indication: KLEBSIELLA INFECTION
     Dosage: 240 MG, 1X/DAY
     Route: 042
     Dates: start: 20181006, end: 20181106

REACTIONS (3)
  - Cholestasis [Recovered/Resolved]
  - Acute kidney injury [Recovered/Resolved]
  - Dyssomnia [Recovered/Resolved]

NARRATIVE: CASE EVENT DATE: 20181106
